FAERS Safety Report 12923796 (Version 1)
Quarter: 2016Q4

REPORT INFORMATION
  Report Type: Spontaneous
  Country: US (occurrence: US)
  Receive Date: 20161108
  Receipt Date: 20161108
  Transmission Date: 20170207
  Serious: Yes (Hospitalization, Other)
  Sender: FDA-Public Use
  Company Number: US-DSJP-DSU-2016-137034

PATIENT

DRUGS (2)
  1. SAVAYSA [Suspect]
     Active Substance: EDOXABAN TOSYLATE
     Indication: ATRIAL FIBRILLATION
     Dosage: 30 MG, UNK
     Dates: start: 2015
  2. SAVAYSA [Suspect]
     Active Substance: EDOXABAN TOSYLATE
     Dosage: 60 MG, UNK
     Dates: start: 2015, end: 2015

REACTIONS (8)
  - Delirium [Recovering/Resolving]
  - Malaise [Recovering/Resolving]
  - Arthralgia [Not Recovered/Not Resolved]
  - Femur fracture [Recovered/Resolved]
  - Fall [Unknown]
  - Medication error [Recovered/Resolved]
  - Weight decreased [Recovering/Resolving]
  - Cardiac failure [Unknown]

NARRATIVE: CASE EVENT DATE: 2015
